FAERS Safety Report 9735863 (Version 1)
Quarter: 2013Q4

REPORT INFORMATION
  Report Type: Spontaneous
  Country: US (occurrence: US)
  Receive Date: 20131206
  Receipt Date: 20131206
  Transmission Date: 20140711
  Serious: No
  Sender: FDA-Public Use
  Company Number: US-GILEAD-2009-0024271

PATIENT
  Sex: Female
  Weight: 88.45 kg

DRUGS (17)
  1. LETAIRIS [Suspect]
     Indication: PULMONARY ARTERIAL HYPERTENSION
     Route: 048
     Dates: start: 20090520
  2. MIDODRINE [Concomitant]
  3. CYMBALTA [Concomitant]
  4. BUMEX [Concomitant]
  5. PRILOSEC [Concomitant]
  6. MULTIVITAMINS [Concomitant]
  7. ALTACE [Concomitant]
  8. SYSTANE [Concomitant]
  9. STARLIX [Concomitant]
  10. NITRO-DUR PATCH [Concomitant]
  11. LANTUS INSULIN [Concomitant]
  12. LOVASTATIN [Concomitant]
  13. ADVAIR [Concomitant]
  14. LEVOXYL [Concomitant]
  15. FERROUS SULFATE [Concomitant]
  16. POTASSIUM CHLORIDE [Concomitant]
  17. GLUCOSAMINE [Concomitant]

REACTIONS (1)
  - Weight increased [Unknown]
